FAERS Safety Report 7942627-6 (Version None)
Quarter: 2011Q4

REPORT INFORMATION
  Report Type: 
  Country: None (occurrence: None)
  Receive Date: 20111128
  Receipt Date: 20111121
  Transmission Date: 20120403
  Serious: Yes (Hospitalization)
  Sender: FDA-Public Use
  Company Number: CA-UCBSA-043107

PATIENT
  Age: 22 Year
  Sex: Female
  Weight: 63.5 kg

DRUGS (5)
  1. PANTOPRAZOLE SODIUM [Concomitant]
     Route: 048
  2. CALCIUM [Concomitant]
     Route: 048
  3. CIMZIA [Suspect]
     Indication: RHEUMATOID ARTHRITIS
     Dosage: THE EXPIRY DATE FOR LOT NUMBER 60498 IS ??/NOV/2013
     Route: 058
     Dates: start: 20101104
  4. TRICYCLIN [Concomitant]
     Route: 048
  5. TEVA-KETOROLAC [Concomitant]
     Indication: RHEUMATOID ARTHRITIS
     Route: 048

REACTIONS (3)
  - ABDOMINAL PAIN LOWER [None]
  - EYE INFECTION [None]
  - URINARY TRACT INFECTION [None]
